FAERS Safety Report 5105645-1 (Version None)
Quarter: 2006Q3

REPORT INFORMATION
  Report Type: 
  Country: None (occurrence: None)
  Receive Date: 20060731
  Receipt Date: 20060413
  Transmission Date: 20061208
  Serious: Yes (Hospitalization, Other)
  Sender: FDA-Public Use
  Company Number: US-JNJFOC-20060403463

PATIENT
  Age: 18 Year
  Sex: Female

DRUGS (3)
  1. RISPERDAL [Suspect]
     Indication: BIPOLAR DISORDER
     Dosage: 2 MG, 1 IN 1 DAY, ORAL
     Route: 048
     Dates: start: 20051101
  2. RISPERDAL [Suspect]
     Indication: DEPRESSION
     Dosage: 2 MG, 1 IN 1 DAY, ORAL
     Route: 048
     Dates: start: 20051101
  3. PROZAC [Suspect]
     Indication: DEPRESSION
     Dosage: 40 MG, 1 IN 1 DAY, ORAL
     Route: 048
     Dates: start: 20051101

REACTIONS (2)
  - AGITATION [None]
  - SUICIDAL IDEATION [None]
